FAERS Safety Report 9469987 (Version 13)
Quarter: 2015Q3

REPORT INFORMATION
  Report Type: Spontaneous
  Country: CA (occurrence: CA)
  Receive Date: 20130822
  Receipt Date: 20150909
  Transmission Date: 20151125
  Serious: Yes (Other)
  Sender: FDA-Public Use
  Company Number: CA-ROCHE-1263787

PATIENT
  Age: 59 Year
  Sex: Male

DRUGS (11)
  1. XOLAIR [Suspect]
     Active Substance: OMALIZUMAB
     Route: 058
  2. XOLAIR [Suspect]
     Active Substance: OMALIZUMAB
     Route: 058
     Dates: start: 20141119
  3. XOLAIR [Suspect]
     Active Substance: OMALIZUMAB
     Indication: ASTHMA
     Route: 058
     Dates: start: 20130702
  4. VENTOLIN [Concomitant]
     Active Substance: ALBUTEROL SULFATE
  5. XOLAIR [Suspect]
     Active Substance: OMALIZUMAB
     Route: 058
     Dates: start: 20131204
  6. ADVAIR HFA [Concomitant]
     Active Substance: FLUTICASONE PROPIONATE\SALMETEROL XINAFOATE
  7. XOLAIR [Suspect]
     Active Substance: OMALIZUMAB
     Route: 058
     Dates: start: 20150819
  8. XOLAIR [Suspect]
     Active Substance: OMALIZUMAB
     Route: 058
     Dates: start: 20150211
  9. XOLAIR [Suspect]
     Active Substance: OMALIZUMAB
     Route: 058
     Dates: start: 20150901
  10. XOLAIR [Suspect]
     Active Substance: OMALIZUMAB
     Route: 058
     Dates: start: 20150128
  11. XOLAIR [Suspect]
     Active Substance: OMALIZUMAB
     Route: 058

REACTIONS (16)
  - Cough [Unknown]
  - Wrong technique in product usage process [Unknown]
  - Dizziness [Unknown]
  - Chills [Unknown]
  - Pulmonary congestion [Unknown]
  - Respiratory rate increased [Unknown]
  - Dyspnoea [Unknown]
  - Drug ineffective [Unknown]
  - Blood pressure increased [Unknown]
  - Sputum discoloured [Unknown]
  - Nasopharyngitis [Unknown]
  - Gastric disorder [Unknown]
  - Pyrexia [Recovered/Resolved]
  - Feeling hot [Unknown]
  - Asthma [Unknown]
  - Anxiety [Unknown]

NARRATIVE: CASE EVENT DATE: 20130812
